FAERS Safety Report 26014189 (Version 2)
Quarter: 2025Q4

REPORT INFORMATION
  Report Type: Report from Study
  Country: KR (occurrence: KR)
  Receive Date: 20251108
  Receipt Date: 20251227
  Transmission Date: 20260117
  Serious: Yes (Other)
  Sender: ROCHE
  Company Number: KR-ROCHE-10000398990

PATIENT
  Age: 51 Year
  Sex: Female
  Weight: 64.5 kg

DRUGS (18)
  1. PHESGO [Suspect]
     Active Substance: HYALURONIDASE-ZZXF\PERTUZUMAB\TRASTUZUMAB
     Indication: HER2 positive breast cancer
     Dosage: 1200/600 MG
     Route: 058
  2. PHESGO [Suspect]
     Active Substance: HYALURONIDASE-ZZXF\PERTUZUMAB\TRASTUZUMAB
     Dosage: 600/600 MG
     Route: 058
  3. PHESGO [Suspect]
     Active Substance: HYALURONIDASE-ZZXF\PERTUZUMAB\TRASTUZUMAB
     Dosage: 600/600 MG
     Route: 058
  4. PHESGO [Suspect]
     Active Substance: HYALURONIDASE-ZZXF\PERTUZUMAB\TRASTUZUMAB
     Dosage: 600/600 MG
     Route: 058
  5. DOCETAXEL [Suspect]
     Active Substance: DOCETAXEL
     Indication: HER2 positive breast cancer
     Route: 042
  6. DOCETAXEL [Suspect]
     Active Substance: DOCETAXEL
     Route: 042
  7. DOCETAXEL [Suspect]
     Active Substance: DOCETAXEL
     Route: 042
  8. DOCETAXEL [Suspect]
     Active Substance: DOCETAXEL
     Route: 042
  9. CARBOPLATIN [Suspect]
     Active Substance: CARBOPLATIN
     Indication: HER2 positive breast cancer
     Route: 042
  10. CARBOPLATIN [Suspect]
     Active Substance: CARBOPLATIN
     Route: 042
  11. CARBOPLATIN [Suspect]
     Active Substance: CARBOPLATIN
     Route: 042
  12. CARBOPLATIN [Suspect]
     Active Substance: CARBOPLATIN
     Route: 042
  13. Indenol Tab. 10mg [Concomitant]
     Indication: Panic disorder
     Route: 048
     Dates: start: 2015
  14. Myungin Diazepam Tab. 2mg [Concomitant]
     Indication: Panic disorder
     Route: 048
     Dates: start: 2015
  15. Alpram Tab. 0.5mg [Concomitant]
     Indication: Panic disorder
  16. Spabutine Tab. 100mg [Concomitant]
     Indication: Prophylaxis
     Route: 048
     Dates: start: 2015
  17. Enafon Tab. 5mg [Concomitant]
     Indication: Panic disorder
     Route: 048
     Dates: start: 2015
  18. PEVAROZET [Concomitant]
     Indication: Dyslipidaemia
     Route: 048
     Dates: start: 2022

REACTIONS (1)
  - Hepatotoxicity [Recovered/Resolved]

NARRATIVE: CASE EVENT DATE: 20250724
